FAERS Safety Report 4633156-6 (Version None)
Quarter: 2005Q2

REPORT INFORMATION
  Report Type: 
  Country: None (occurrence: None)
  Receive Date: 20050412
  Receipt Date: 20041118
  Transmission Date: 20051028
  Serious: Yes (Death, Life-Threatening, Other)
  Sender: FDA-Public Use
  Company Number: JP-BRISTOL-MYERS SQUIBB COMPANY-12770483

PATIENT
  Age: 54 Year
  Sex: Female

DRUGS (1)
  1. TAXOL [Suspect]
     Indication: GASTRIC CANCER
     Dosage: START DATE:  22-SEP-2004 TO 06-OCT-2004 AND THEN 08-NOV-2004
     Route: 042
     Dates: start: 20041108, end: 20041108

REACTIONS (4)
  - BACTERAEMIA [None]
  - COMA [None]
  - ENCEPHALITIS [None]
  - WHITE BLOOD CELL COUNT DECREASED [None]
